FAERS Safety Report 5859364-4 (Version None)
Quarter: 2008Q3

REPORT INFORMATION
  Report Type: 
  Country: None (occurrence: None)
  Receive Date: 20080827
  Receipt Date: 20080821
  Transmission Date: 20090109
  Serious: Yes (Death)
  Sender: FDA-Public Use
  Company Number: FR-BAYER-200822507GPV

PATIENT
  Age: 65 Year
  Sex: Male

DRUGS (1)
  1. NEXAVAR [Suspect]
     Indication: LUNG CANCER METASTATIC
     Route: 048
     Dates: start: 20080701

REACTIONS (1)
  - ASTHENIA [None]
